FAERS Safety Report 9511666 (Version 2)
Quarter: 2013Q4

REPORT INFORMATION
  Report Type: Spontaneous
  Country: SE (occurrence: SE)
  Receive Date: 20130910
  Receipt Date: 20131004
  Transmission Date: 20140711
  Serious: Yes (Hospitalization)
  Sender: FDA-Public Use
  Company Number: SE-ASTELLAS-2013EU007513

PATIENT
  Sex: Female

DRUGS (6)
  1. BETMIGA [Suspect]
     Indication: HYPERTONIC BLADDER
     Dosage: 50 MG, UNKNOWN/D
     Route: 048
     Dates: start: 20130613, end: 20130711
  2. LIPITOR [Concomitant]
     Dosage: UNK
     Route: 065
  3. OMEPRAZOL                          /00661201/ [Concomitant]
     Dosage: UNK
     Route: 065
  4. SELOKENZOC [Concomitant]
     Dosage: UNK
     Route: 065
  5. TROMBYL [Concomitant]
     Dosage: UNK
     Route: 065
  6. VAGIFEM [Concomitant]
     Dosage: UNK
     Route: 065

REACTIONS (2)
  - Haematuria [Recovered/Resolved]
  - Bacteriuria [Recovered/Resolved]
